FAERS Safety Report 14274626 (Version 2)
Quarter: 2018Q2

REPORT INFORMATION
  Report Type: Report from Study
  Country: None (occurrence: SE)
  Receive Date: 20171212
  Receipt Date: 20180525
  Transmission Date: 20180711
  Serious: Yes (Hospitalization)
  Sender: FDA-Public Use
  Company Number: SE-ABBVIE-17K-150-2183598-00

PATIENT
  Age: 69 Year
  Sex: Male

DRUGS (4)
  1. DUODOPA [Suspect]
     Active Substance: CARBIDOPA\LEVODOPA
     Route: 050
     Dates: start: 20171207
  2. DUODOPA [Suspect]
     Active Substance: CARBIDOPA\LEVODOPA
     Indication: PARKINSON^S DISEASE
     Route: 050
     Dates: start: 20130402, end: 2013
  3. DUODOPA [Suspect]
     Active Substance: CARBIDOPA\LEVODOPA
     Route: 050
     Dates: start: 20130613, end: 20171205
  4. MADOPARK [Concomitant]
     Active Substance: BENSERAZIDE HYDROCHLORIDE\LEVODOPA
     Indication: PRODUCT USED FOR UNKNOWN INDICATION
     Dates: start: 201712, end: 201712

REACTIONS (16)
  - Fatigue [Not Recovered/Not Resolved]
  - Embedded device [Recovered/Resolved]
  - Infection [Recovered/Resolved]
  - Gastrointestinal injury [Unknown]
  - Abdominal pain [Unknown]
  - Decreased appetite [Not Recovered/Not Resolved]
  - Abdominal pain [Recovered/Resolved]
  - Hypotension [Recovered/Resolved]
  - Oral fungal infection [Recovered/Resolved]
  - Fungal skin infection [Recovered/Resolved]
  - Freezing phenomenon [Not Recovered/Not Resolved]
  - Device kink [Unknown]
  - Heart rate decreased [Recovered/Resolved]
  - Stoma site pain [Recovering/Resolving]
  - Stoma site rash [Recovered/Resolved]
  - Asthenia [Recovering/Resolving]

NARRATIVE: CASE EVENT DATE: 201712
